FAERS Safety Report 7523009-8 (Version None)
Quarter: 2011Q2

REPORT INFORMATION
  Report Type: 
  Country: None (occurrence: None)
  Receive Date: 20110603
  Receipt Date: 20110531
  Transmission Date: 20111010
  Serious: Yes (Hospitalization, Other)
  Sender: FDA-Public Use
  Company Number: BR-MERCK-1105BRA00057

PATIENT
  Age: 4 Year
  Sex: Male
  Weight: 20 kg

DRUGS (1)
  1. SINGULAIR [Suspect]
     Indication: RHINITIS
     Route: 048
     Dates: start: 20110518, end: 20110518

REACTIONS (8)
  - LOSS OF CONSCIOUSNESS [None]
  - CONVULSION [None]
  - VOMITING [None]
  - LIP SWELLING [None]
  - BLOOD PRESSURE DECREASED [None]
  - ABDOMINAL PAIN [None]
  - SWELLING FACE [None]
  - BODY TEMPERATURE DECREASED [None]
